FAERS Safety Report 16502716 (Version 1)
Quarter: 2019Q3

REPORT INFORMATION
  Report Type: Spontaneous
  Country: FR (occurrence: FR)
  Receive Date: 20190701
  Receipt Date: 20190701
  Transmission Date: 20191004
  Serious: Yes (Hospitalization, Other)
  Sender: FDA-Public Use
  Company Number: PHHY2019FR145357

PATIENT
  Sex: Male
  Weight: 3 kg

DRUGS (13)
  1. ROACTEMRA [Suspect]
     Active Substance: TOCILIZUMAB
     Indication: FOETAL EXPOSURE DURING PREGNANCY
     Dosage: UNK
     Route: 064
  2. UN-ALFA [Concomitant]
     Active Substance: ALFACALCIDOL
     Indication: FOETAL EXPOSURE DURING PREGNANCY
     Dosage: UNK
     Route: 064
  3. HUMAN IMMUNOGLBULIN [Suspect]
     Active Substance: HUMAN IMMUNOGLOBULIN G
     Dosage: UNK
     Route: 064
     Dates: start: 20151128, end: 20151128
  4. KINERET [Suspect]
     Active Substance: ANAKINRA
     Indication: FOETAL EXPOSURE DURING PREGNANCY
     Dosage: UNK
     Route: 064
  5. ACICLOVIR [Concomitant]
     Active Substance: ACYCLOVIR
     Indication: FOETAL EXPOSURE DURING PREGNANCY
     Dosage: UNK
     Route: 064
  6. PREDNISONE. [Suspect]
     Active Substance: PREDNISONE
     Indication: FOETAL EXPOSURE DURING PREGNANCY
     Dosage: MOTHER DOSE: 500 MG
     Route: 064
  7. CIMZIA [Suspect]
     Active Substance: CERTOLIZUMAB PEGOL
     Indication: FOETAL EXPOSURE DURING PREGNANCY
     Dosage: UNK
     Route: 064
  8. COLCHICINE. [Concomitant]
     Active Substance: COLCHICINE
     Indication: FOETAL EXPOSURE DURING PREGNANCY
     Dosage: UNK
     Route: 064
  9. COLCHICINE. [Concomitant]
     Active Substance: COLCHICINE
     Dosage: UNK
     Route: 064
  10. PREDNISONE. [Suspect]
     Active Substance: PREDNISONE
     Dosage: MOTHER DOSE: 500 MG
     Route: 064
  11. HUMAN IMMUNOGLBULIN [Suspect]
     Active Substance: HUMAN IMMUNOGLOBULIN G
     Indication: FOETAL EXPOSURE DURING PREGNANCY
     Dosage: UNK
     Route: 064
  12. PERFALGAN [Suspect]
     Active Substance: ACETAMINOPHEN
     Indication: FOETAL EXPOSURE DURING PREGNANCY
     Dosage: UNK
     Route: 064
  13. ETANERCEPT [Concomitant]
     Active Substance: ETANERCEPT
     Indication: FOETAL EXPOSURE DURING PREGNANCY
     Dosage: UNK
     Route: 064

REACTIONS (7)
  - Hypocalcaemia [Recovered/Resolved]
  - Infection [Unknown]
  - Bradycardia foetal [Recovered/Resolved]
  - Hepatosplenomegaly [Recovering/Resolving]
  - Premature baby [Unknown]
  - Thrombocytopenia [Recovering/Resolving]
  - Gastrointestinal disorder [Recovering/Resolving]

NARRATIVE: CASE EVENT DATE: 2015
